FAERS Safety Report 17549787 (Version 1)
Quarter: 2020Q1

REPORT INFORMATION
  Report Type: Spontaneous
  Country: GB (occurrence: GB)
  Receive Date: 20200317
  Receipt Date: 20200317
  Transmission Date: 20200409
  Serious: No
  Sender: FDA-Public Use
  Company Number: GB-ALKEM LABORATORIES LIMITED-GB-ALKEM-2020-00400

PATIENT
  Age: 74 Year
  Sex: Male
  Weight: 90 kg

DRUGS (12)
  1. SOLIFENACIN [Suspect]
     Active Substance: SOLIFENACIN
     Indication: PRODUCT USED FOR UNKNOWN INDICATION
     Dosage: UNK (TAKE ONCE A DAY)
     Route: 065
     Dates: start: 20200115
  2. HYDROXOCOBALAMIN [Concomitant]
     Active Substance: HYDROXOCOBALAMIN
     Indication: ILL-DEFINED DISORDER
     Dosage: UNK (ADMINISTERED BY INTRAMUSCULAR INJECTION)
     Route: 065
     Dates: start: 20200110
  3. FEXOFENADINE [Concomitant]
     Active Substance: FEXOFENADINE HYDROCHLORIDE
     Indication: ILL-DEFINED DISORDER
     Dosage: UNK (TAKE ONE DAILY)
     Route: 065
     Dates: start: 20200131
  4. FOLIC ACID. [Concomitant]
     Active Substance: FOLIC ACID
     Indication: ILL-DEFINED DISORDER
     Dosage: UNK (TAKE ONE DAILY)
     Route: 065
     Dates: start: 20190429
  5. TOLTERODINE TARTRATE. [Concomitant]
     Active Substance: TOLTERODINE TARTRATE
     Indication: ILL-DEFINED DISORDER
     Dosage: UNK (ONE TO BE TAKEN DAILY)
     Route: 065
     Dates: start: 20190429
  6. SALBUTAMOL [Concomitant]
     Active Substance: ALBUTEROL
     Indication: ILL-DEFINED DISORDER
     Dosage: UNK (INHALE 2 PUFFS WHEN REQUIRED (FOR ASTHMA) IF REQUIRED)
     Route: 065
     Dates: start: 20200115
  7. ISOSORBIDE MONONITRATE. [Concomitant]
     Active Substance: ISOSORBIDE MONONITRATE
     Indication: ILL-DEFINED DISORDER
     Dosage: UNK (TAKE ONE EACH MORNING)
     Route: 065
     Dates: start: 20190429
  8. ACCRETE D3 [Concomitant]
     Active Substance: CALCIUM CARBONATE\CHOLECALCIFEROL
     Indication: ILL-DEFINED DISORDER
     Dosage: UNK (1 TO BE TAKEN TWICE DAILY)
     Route: 065
     Dates: start: 20190429, end: 20191127
  9. PRAVASTATIN. [Concomitant]
     Active Substance: PRAVASTATIN
     Indication: ILL-DEFINED DISORDER
     Dosage: UNK
     Route: 065
     Dates: start: 20190429
  10. ACICLOVIR [Concomitant]
     Active Substance: ACYCLOVIR
     Indication: ILL-DEFINED DISORDER
     Dosage: UNK (TAKE ONE TWICE DAILY)
     Route: 065
     Dates: start: 20190429
  11. DOXAZOSIN [Concomitant]
     Active Substance: DOXAZOSIN MESYLATE
     Indication: ILL-DEFINED DISORDER
     Dosage: UNK (TAKE ONE DAILY)
     Route: 065
     Dates: start: 20190429
  12. APIXABAN [Concomitant]
     Active Substance: APIXABAN
     Indication: ILL-DEFINED DISORDER
     Dosage: UNK (TAKE ONE TWICE DAILY)
     Route: 065
     Dates: start: 20190429

REACTIONS (1)
  - Rash erythematous [Recovering/Resolving]
